FAERS Safety Report 24836240 (Version 3)
Quarter: 2025Q1

REPORT INFORMATION
  Report Type: Spontaneous
  Country: US (occurrence: US)
  Receive Date: 20250113
  Receipt Date: 20250204
  Transmission Date: 20250409
  Serious: No
  Sender: SANOFI AVENTIS
  Company Number: US-SANOFI-02367738

PATIENT
  Age: 16 Year
  Sex: Female

DRUGS (1)
  1. LANTUS [Suspect]
     Active Substance: INSULIN GLARGINE
     Indication: Type 1 diabetes mellitus
     Dosage: 16 U, QD
     Route: 065
     Dates: start: 2021

REACTIONS (2)
  - Blood glucose increased [Unknown]
  - Product quality issue [Unknown]
